FAERS Safety Report 13691080 (Version 3)
Quarter: 2017Q4

REPORT INFORMATION
  Report Type: Spontaneous
  Country: US (occurrence: US)
  Receive Date: 20170626
  Receipt Date: 20171025
  Transmission Date: 20180320
  Serious: Yes (Hospitalization, Other)
  Sender: FDA-Public Use
  Company Number: US-PFIZER INC-2017270997

PATIENT
  Age: 73 Year
  Sex: Female
  Weight: 76 kg

DRUGS (12)
  1. XALATAN [Suspect]
     Active Substance: LATANOPROST
     Dosage: UNK
  2. TOBRAMYCIN. [Concomitant]
     Active Substance: TOBRAMYCIN
     Indication: ANTIBIOTIC THERAPY
     Dosage: ONE DROP IN LEFT EYE 4 TIMES A DAY
     Route: 047
     Dates: start: 2017
  3. ALPHAGAN P [Concomitant]
     Active Substance: BRIMONIDINE TARTRATE
     Indication: GLAUCOMA
     Dosage: 1 GTT, 3X/DAY (1 DROP AT 8 IN THE MORNING, 1 DROP AT 2 IN THE AFTERNOON AND 1 DROP AT 8 AT NIGHT
     Route: 047
     Dates: start: 2015, end: 201705
  4. ZANTAC [Concomitant]
     Active Substance: RANITIDINE HYDROCHLORIDE
     Indication: GASTROOESOPHAGEAL REFLUX DISEASE
     Dosage: 1 DF, 2X/DAY 1 TABLET TWICE A DAY BY MOUTH
     Route: 048
     Dates: start: 2016
  5. PROTONIX [Concomitant]
     Active Substance: PANTOPRAZOLE SODIUM
     Dosage: UNK
     Dates: start: 2016
  6. TYLENOL [Concomitant]
     Active Substance: ACETAMINOPHEN
     Indication: PAIN
     Dosage: 1 OR 2 CAPLET AS NEEDED
     Route: 048
  7. AZOPT [Concomitant]
     Active Substance: BRINZOLAMIDE
     Indication: GLAUCOMA
     Dosage: 10 ML, 3X/DAY
     Dates: start: 2015
  8. XALATAN [Suspect]
     Active Substance: LATANOPROST
     Indication: CATARACT
     Dosage: 2.5 MG, 1X/DAY(ONCE AT BED TIME)
  9. AZOPT [Concomitant]
     Active Substance: BRINZOLAMIDE
     Indication: CATARACT
  10. XALATAN [Suspect]
     Active Substance: LATANOPROST
     Indication: GLAUCOMA
     Dosage: 1 DROP IN LEFT EYE AT BEDTIME
     Route: 047
     Dates: start: 2011
  11. ALPHAGAN P [Concomitant]
     Active Substance: BRIMONIDINE TARTRATE
     Dosage: UNK
     Dates: end: 201707
  12. ZANTAC [Concomitant]
     Active Substance: RANITIDINE HYDROCHLORIDE
     Dosage: 2 DF, 2X/DAY

REACTIONS (2)
  - Cataract [Recovered/Resolved]
  - Overdose [Unknown]
